FAERS Safety Report 18677127 (Version 2)
Quarter: 2023Q1

REPORT INFORMATION
  Report Type: Spontaneous
  Country: CZ (occurrence: CZ)
  Receive Date: 20201229
  Receipt Date: 20230104
  Transmission Date: 20230417
  Serious: Yes (Hospitalization, Disabling, Other)
  Sender: FDA-Public Use
  Company Number: CZ-GLAXOSMITHKLINE-CZ2020GSK241434

PATIENT
  Sex: Female

DRUGS (6)
  1. TRAMADOL [Suspect]
     Active Substance: TRAMADOL
     Indication: Pain
     Dosage: UNK
     Route: 065
  2. OXAZEPAM [Suspect]
     Active Substance: OXAZEPAM
     Indication: Anxiety
     Dosage: UNK
     Route: 065
  3. ZOLPIDEM TARTRATE [Suspect]
     Active Substance: ZOLPIDEM TARTRATE
     Indication: Insomnia
     Dosage: UNK
     Route: 065
  4. IBUPROFEN [Suspect]
     Active Substance: IBUPROFEN
     Indication: Analgesic intervention supportive therapy
     Dosage: UNK
     Route: 065
  5. IBUPROFEN [Suspect]
     Active Substance: IBUPROFEN
     Indication: Pain
  6. ZOLPIDEM TARTRATE [Suspect]
     Active Substance: ZOLPIDEM TARTRATE
     Indication: Insomnia
     Dosage: UNK
     Route: 065

REACTIONS (18)
  - Pelvic fracture [Recovered/Resolved]
  - Deafness [Recovering/Resolving]
  - Foreign body [Recovered/Resolved]
  - Fall [Unknown]
  - Condition aggravated [Recovering/Resolving]
  - Hypoacusis [Recovering/Resolving]
  - Self-medication [Recovered/Resolved]
  - Contusion [Recovered/Resolved]
  - Restlessness [Recovering/Resolving]
  - Dizziness [Recovered/Resolved]
  - Poor quality sleep [Recovered/Resolved]
  - Anxiety [Recovering/Resolving]
  - Cognitive disorder [Recovering/Resolving]
  - Product use issue [Recovered/Resolved]
  - Prescription drug used without a prescription [Unknown]
  - Sleep disorder [Unknown]
  - Intentional overdose [Recovering/Resolving]
  - Drug abuse [Recovering/Resolving]
